FAERS Safety Report 11860301 (Version 1)
Quarter: 2015Q4

REPORT INFORMATION
  Report Type: Spontaneous
  Country: None (occurrence: GB)
  Receive Date: 20151222
  Receipt Date: 20151222
  Transmission Date: 20160305
  Serious: Yes (Other)
  Sender: FDA-Public Use
  Company Number: GB-MEDAC PHARMA, INC.-1045779

PATIENT
  Age: 57 Year
  Sex: Female

DRUGS (2)
  1. SIMPONI [Suspect]
     Active Substance: GOLIMUMAB
     Route: 058
  2. METHOTREXATE [Suspect]
     Active Substance: METHOTREXATE
     Route: 065

REACTIONS (2)
  - Nasal congestion [Unknown]
  - Lower respiratory tract infection [Recovered/Resolved]

NARRATIVE: CASE EVENT DATE: 2015
